FAERS Safety Report 7490492-6 (Version None)
Quarter: 2011Q2

REPORT INFORMATION
  Report Type: 
  Country: None (occurrence: None)
  Receive Date: 20110519
  Receipt Date: 20110504
  Transmission Date: 20111010
  Serious: Yes (Hospitalization)
  Sender: FDA-Public Use
  Company Number: US-MEDIMMUNE-MEDI-0012985

PATIENT
  Sex: Male

DRUGS (4)
  1. SYNAGIS [Suspect]
     Dates: start: 20110316, end: 20110316
  2. LACTOBACILLUS PROBIOTIC [Concomitant]
  3. POLY-VI-SOL [Concomitant]
  4. ZANTAC [Concomitant]

REACTIONS (1)
  - APNOEA [None]
